FAERS Safety Report 23150237 (Version 1)
Quarter: 2023Q4

REPORT INFORMATION
  Report Type: Spontaneous
  Country: NO (occurrence: NO)
  Receive Date: 20231106
  Receipt Date: 20231106
  Transmission Date: 20240110
  Serious: Yes (Hospitalization)
  Sender: FDA-Public Use
  Company Number: None

PATIENT
  Age: 78 Year
  Sex: Female

DRUGS (25)
  1. PEMETREXED [Suspect]
     Active Substance: PEMETREXED
     Indication: Lung neoplasm malignant
     Dosage: DOSE NOT SPECIFIED, BUT PART OF TRIPLE TREATMENT WITH CARBOPLATIN AND PEMBROLIZUMAB. PROBABLY STARTE
     Dates: start: 2023, end: 202309
  2. DEXAMETASON ABCUR [Concomitant]
     Indication: Product used for unknown indication
     Dosage: DOSED ACCORDING TO PHYSICIANS NOTE, DURING CHEMOTHERAPY
     Dates: start: 2023
  3. CETIRIZINE [Concomitant]
     Active Substance: CETIRIZINE HYDROCHLORIDE
     Indication: Product used for unknown indication
  4. METOCLOPRAMIDE [Concomitant]
     Active Substance: METOCLOPRAMIDE
     Indication: Nausea
     Dosage: 10 MG UP TO X 3
  5. MIRTAZAPINE [Concomitant]
     Active Substance: MIRTAZAPINE
     Indication: Insomnia
  6. MELATONIN [Concomitant]
     Active Substance: MELATONIN
     Indication: Insomnia
  7. OXAZEPAM [Concomitant]
     Active Substance: OXAZEPAM
     Indication: Panic attack
  8. ALBUTEROL [Concomitant]
     Active Substance: ALBUTEROL
     Indication: Chronic obstructive pulmonary disease
     Dosage: 0,1 MG, 1-2 DOSES UP TO X 4
  9. Laktulose MIP Pharma [Concomitant]
     Indication: Constipation
     Dosage: 10-20 ML UP TO X 3
  10. PEMBROLIZUMAB [Concomitant]
     Active Substance: PEMBROLIZUMAB
     Indication: Lung neoplasm malignant
     Dosage: DOSE NOT SPECIFIED, BUT PART OF TRIPLE TREATMENT WITH CARBOPLATIN AND PEMETREXED. PROBABLY STARTED I
     Dates: start: 2023
  11. ONDANSETRON [Concomitant]
     Active Substance: ONDANSETRON
     Indication: Chemotherapy side effect prophylaxis
     Dosage: 8 MG X 2 ON THE DAY OF CHEMOTHERAPY
  12. MORPHINE [Concomitant]
     Active Substance: MORPHINE
     Indication: Dyspnoea
  13. CARBOPLATIN [Concomitant]
     Active Substance: CARBOPLATIN
     Indication: Lung neoplasm malignant
     Dosage: DOSE NOT SPECIFIED, BUT PART OF TRIPLE TREATMENT WITH PEMETREXED AND PEMBROLIZUMAB. PROBABLY STARTED
     Dates: start: 2023
  14. DEXAMETHASONE [Concomitant]
     Active Substance: DEXAMETHASONE
     Indication: Chemotherapy side effect prophylaxis
     Dosage: 8 MG THE DAY BEFORE, 1 HOUR BEFORE AND THE DAY AFTER CHEMOTHERAPY
  15. ASPIRIN [Concomitant]
     Active Substance: ASPIRIN
     Indication: Thrombosis prophylaxis
  16. SODIUM PICOSULFATE [Concomitant]
     Active Substance: SODIUM PICOSULFATE
     Indication: Constipation
     Dosage: 5-10 DROPS UP TO X 2 WHEN NEEDED
  17. ESOMEPRAZOLE [Concomitant]
     Active Substance: ESOMEPRAZOLE
     Indication: Prophylaxis against gastrointestinal ulcer
  18. ZOPICLONE [Concomitant]
     Active Substance: ZOPICLONE
     Indication: Insomnia
  19. Natriumklorid B. Braun [Concomitant]
     Indication: Product used for unknown indication
     Dosage: 1-3 ML FOR INHALATION VIA NEBULIZER
  20. NICOTINE [Concomitant]
     Active Substance: NICOTINE
     Indication: Ex-tobacco user
     Dosage: 14 MG/24 HOURS
  21. BECLOMETHASONE DIPROPIONATE\FORMOTEROL FUMARATE\GLYCOPYRROLATE [Concomitant]
     Active Substance: BECLOMETHASONE DIPROPIONATE\FORMOTEROL FUMARATE\GLYCOPYRROLATE
     Indication: Product used for unknown indication
     Dosage: 2 DOSAGE FORM
  22. IPRATROPIUM BROMIDE [Concomitant]
     Active Substance: IPRATROPIUM BROMIDE\IPRATROPIUM BROMIDE ANHYDROUS
     Indication: Product used for unknown indication
     Dosage: 0.25 MG/ML UP TO X 3
  23. FOLIC ACID [Concomitant]
     Active Substance: FOLIC ACID
     Indication: Product used for unknown indication
  24. ACETAMINOPHEN [Concomitant]
     Active Substance: ACETAMINOPHEN
     Indication: Pain
     Dosage: 1 G UP TO X 4
  25. LOPERAMIDE [Concomitant]
     Active Substance: LOPERAMIDE
     Indication: Diarrhoea
     Dosage: FIRST DOSE: 2 TABLETS, THEN 1 TABLET AFTER EVERY LOOSE STOOL. MAX 8 TABLETS PER DAY

REACTIONS (1)
  - Hypersensitivity pneumonitis [Recovering/Resolving]

NARRATIVE: CASE EVENT DATE: 20230924
